FAERS Safety Report 19969458 (Version 1)
Quarter: 2021Q4

REPORT INFORMATION
  Report Type: Spontaneous
  Country: CA (occurrence: CA)
  Receive Date: 20211019
  Receipt Date: 20211019
  Transmission Date: 20220303
  Serious: Yes (Hospitalization)
  Sender: FDA-Public Use
  Company Number: CA-PFIZER INC-202101349891

PATIENT
  Age: 60 Year
  Sex: Male
  Weight: 89 kg

DRUGS (14)
  1. CYTARABINE [Suspect]
     Active Substance: CYTARABINE
     Indication: Acute myeloid leukaemia
     Dosage: UNK
  2. DEXAMETHASONE [Concomitant]
     Active Substance: DEXAMETHASONE
     Route: 065
  3. DEXAMETHASONE [Concomitant]
     Active Substance: DEXAMETHASONE
     Route: 065
  4. FLOMAX [Concomitant]
     Active Substance: TAMSULOSIN HYDROCHLORIDE
  5. FLUCONAZOLE [Concomitant]
     Active Substance: FLUCONAZOLE
  6. LAXA-TABS [Concomitant]
  7. LORAZEPAM [Concomitant]
     Active Substance: LORAZEPAM
  8. MOTILIUM [Concomitant]
     Active Substance: DOMPERIDONE
  9. ONDANSETRON [Concomitant]
     Active Substance: ONDANSETRON
  10. PREGABALIN [Concomitant]
     Active Substance: PREGABALIN
  11. SINEMET [Concomitant]
     Active Substance: CARBIDOPA\LEVODOPA
  12. TYLENOL [Concomitant]
     Active Substance: ACETAMINOPHEN
  13. VALACYCLOVIR [Concomitant]
     Active Substance: VALACYCLOVIR HYDROCHLORIDE
  14. VITAMIN D NOS [Concomitant]
     Active Substance: VITAMIN D NOS

REACTIONS (1)
  - Febrile neutropenia [Recovered/Resolved]
